FAERS Safety Report 6783208-X (Version None)
Quarter: 2010Q2

REPORT INFORMATION
  Report Type: 
  Country: None (occurrence: None)
  Receive Date: 20100622
  Receipt Date: 20100617
  Transmission Date: 20101027
  Serious: Yes (Other)
  Sender: FDA-Public Use
  Company Number: JP-JNJFOC-20100605941

PATIENT

DRUGS (3)
  1. CONCERTA [Suspect]
     Indication: DRUG USE FOR UNKNOWN INDICATION
     Route: 048
  2. METHYLPHENIDATE HCL [Suspect]
     Indication: DRUG USE FOR UNKNOWN INDICATION
     Route: 065
  3. ATOMOXETINE HCL [Suspect]
     Indication: DRUG USE FOR UNKNOWN INDICATION
     Route: 065

REACTIONS (2)
  - MULTIPLE DRUG OVERDOSE INTENTIONAL [None]
  - SUICIDE ATTEMPT [None]
